FAERS Safety Report 5276778-4 (Version None)
Quarter: 2007Q1

REPORT INFORMATION
  Report Type: 
  Country: None (occurrence: None)
  Receive Date: 20070327
  Receipt Date: 20070322
  Transmission Date: 20070707
  Serious: Yes (Hospitalization)
  Sender: FDA-Public Use
  Company Number: JP-AVENTIS-200710677JP

PATIENT
  Age: 66 Year
  Sex: Male

DRUGS (4)
  1. ALLEGRA [Suspect]
     Route: 048
     Dates: start: 20070307, end: 20070309
  2. TAMIFLU [Concomitant]
     Dates: start: 20070305
  3. ASPIRIN [Concomitant]
     Dosage: DOSE: 1 TABLET
     Route: 048
  4. KETOTEN [Concomitant]

REACTIONS (2)
  - CEREBRAL INFARCTION [None]
  - SPEECH DISORDER [None]
